FAERS Safety Report 9192234 (Version 1)
Quarter: 2013Q1

REPORT INFORMATION
  Report Type: Spontaneous
  Country: US (occurrence: None)
  Receive Date: 20120703
  Receipt Date: 20120703
  Transmission Date: 20140127
  Serious: No
  Sender: FDA-Public Use
  Company Number: PHEH2012US011003

PATIENT
  Age: 42 Year
  Sex: Female

DRUGS (15)
  1. GILENYA [Suspect]
     Route: 048
  2. GABAPENTIN (GABAPENTIN)CAPSULE [Concomitant]
  3. OMEPRAZOLE (OMEPRAZOLE) CAPSULE [Concomitant]
  4. DIZEPAM (DAIZEPAM) TABLET [Concomitant]
  5. BACLOFEN (BACLOFEN) TABLET [Concomitant]
  6. MAGNEISUM (MAGNESIUM) [Concomitant]
  7. VITAMIN B COMPLEX (NO INGREDIENTS/SUBSTANCES)CAPSULE [Concomitant]
  8. NORTREL (ETHINYLESTRADOIL, NORETHISTERONE) TABLET [Concomitant]
  9. PRIMROSE OIL CAPSULE [Concomitant]
  10. VITAMIN B12 (CYANOCOBALAMIN) [Concomitant]
  11. VITAMIN D (ERGOCALCIFEROL) [Concomitant]
  12. ASPIRIN  (ACETYLSALICYCLI ACID) TABLET [Concomitant]
  13. STOOL SOFTENER (DOCUSATE SODIUM) CAPSULE [Concomitant]
  14. CRANBERRY CAPSULE [Concomitant]
  15. ACIDOPHILUS (LACTOBACILLUS ACIDOPHILUS) CAPSULE [Concomitant]

REACTIONS (1)
  - Erythema [None]
